FAERS Safety Report 10962756 (Version 2)
Quarter: 2015Q2

REPORT INFORMATION
  Report Type: Report from Study
  Country: US (occurrence: US)
  Receive Date: 20150327
  Receipt Date: 20150406
  Transmission Date: 20150821
  Serious: No
  Sender: FDA-Public Use
  Company Number: US-ACTELION-A-US2015-114379

PATIENT
  Age: 65 Year
  Sex: Female

DRUGS (10)
  1. LASIX [Concomitant]
     Active Substance: FUROSEMIDE
  2. KCL [Concomitant]
     Active Substance: POTASSIUM CHLORIDE
  3. METOPROLOL [Concomitant]
     Active Substance: METOPROLOL
  4. ELIQUIS [Concomitant]
     Active Substance: APIXABAN
  5. ADCIRCA [Concomitant]
     Active Substance: TADALAFIL
  6. AMITIZA [Concomitant]
     Active Substance: LUBIPROSTONE
  7. XOPENEX [Concomitant]
     Active Substance: LEVALBUTEROL HYDROCHLORIDE
  8. MACITENTAN [Suspect]
     Active Substance: MACITENTAN
     Indication: PULMONARY HYPERTENSION
     Dosage: 10 MG, QD
     Route: 048
     Dates: start: 20150302
  9. ACIPHEX [Concomitant]
     Active Substance: RABEPRAZOLE SODIUM
  10. LINZESS [Concomitant]
     Active Substance: LINACLOTIDE

REACTIONS (14)
  - Urinary tract infection [Unknown]
  - Intervertebral disc degeneration [Unknown]
  - Chest pain [Recovered/Resolved]
  - Oropharyngeal pain [Unknown]
  - Back pain [Unknown]
  - Cough [Unknown]
  - Flatulence [Unknown]
  - Nasal congestion [Unknown]
  - Salivary hypersecretion [Unknown]
  - Myalgia [Unknown]
  - Muscular weakness [Unknown]
  - Headache [Unknown]
  - Influenza like illness [Unknown]
  - Chills [Unknown]

NARRATIVE: CASE EVENT DATE: 20150317
